FAERS Safety Report 7370319-3 (Version None)
Quarter: 2011Q1

REPORT INFORMATION
  Report Type: 
  Country: None (occurrence: None)
  Receive Date: 20110323
  Receipt Date: 20110321
  Transmission Date: 20110831
  Serious: Yes (Other)
  Sender: FDA-Public Use
  Company Number: GB-PFIZER INC-2011062464

PATIENT
  Age: 46 Year
  Sex: Female

DRUGS (7)
  1. SALBUTAMOL [Concomitant]
  2. TIOTROPIUM BROMIDE [Concomitant]
  3. MIRTAZAPINE [Concomitant]
  4. SERETIDE [Concomitant]
  5. CLARITHROMYCIN [Concomitant]
  6. CHAMPIX [Suspect]
     Indication: SMOKING CESSATION THERAPY
     Dosage: 0.5 MG, UNK
     Route: 048
     Dates: start: 20110221, end: 20110223
  7. PREDNISOLONE [Concomitant]

REACTIONS (5)
  - PSYCHOTIC DISORDER [None]
  - DISSOCIATION [None]
  - MENTAL DISORDER [None]
  - ABNORMAL BEHAVIOUR [None]
  - SLEEP DISORDER [None]
